FAERS Safety Report 5354882-X (Version None)
Quarter: 2007Q2

REPORT INFORMATION
  Report Type: 
  Country: None (occurrence: None)
  Receive Date: 20070611
  Receipt Date: 20070523
  Transmission Date: 20071010
  Serious: Yes (Life-Threatening, Hospitalization)
  Sender: FDA-Public Use
  Company Number: 8024102

PATIENT
  Age: 21 Year
  Sex: Female
  Weight: 114 kg

DRUGS (8)
  1. METADATE CD [Suspect]
     Dosage: 20 MG /D PO
     Route: 048
  2. RITALIN [Suspect]
     Dosage: 5 MG 2/D PO
     Route: 048
  3. AMOXICILL [Concomitant]
  4. RISPERDAL [Concomitant]
  5. ROZEREM [Concomitant]
  6. MELATONIN [Concomitant]
  7. LEXAPRO [Concomitant]
  8. VITAMIN CAP [Concomitant]

REACTIONS (4)
  - ANOXIC ENCEPHALOPATHY [None]
  - CARDIO-RESPIRATORY ARREST [None]
  - DRUG INTERACTION [None]
  - VENTRICULAR FIBRILLATION [None]
